FAERS Safety Report 5701005-0 (Version None)
Quarter: 2008Q2

REPORT INFORMATION
  Report Type: 
  Country: None (occurrence: None)
  Receive Date: 20080410
  Receipt Date: 20080404
  Transmission Date: 20081010
  Serious: Yes (Other)
  Sender: FDA-Public Use
  Company Number: US-ASTRAZENECA-2007UW19095

PATIENT
  Age: 45 Year
  Sex: Female
  Weight: 77.3 kg

DRUGS (10)
  1. SEROQUEL [Suspect]
     Indication: ANXIETY
     Route: 048
     Dates: start: 20020801, end: 20070701
  2. SEROQUEL [Suspect]
     Indication: DEPRESSION
     Route: 048
     Dates: start: 20020801, end: 20070701
  3. SEROQUEL [Suspect]
     Indication: BIPOLAR DISORDER
     Route: 048
     Dates: start: 20020801, end: 20070701
  4. SEROQUEL [Suspect]
     Route: 048
     Dates: start: 20060101
  5. SEROQUEL [Suspect]
     Route: 048
     Dates: start: 20060101
  6. SEROQUEL [Suspect]
     Route: 048
     Dates: start: 20060101
  7. ZYPREXA [Concomitant]
     Indication: NERVOUSNESS
     Dates: start: 20020101, end: 20040101
  8. RISPERDAL [Concomitant]
     Dates: start: 19970901, end: 20040201
  9. ABILIFY [Concomitant]
     Dates: start: 20000101
  10. GEODON [Concomitant]
     Dates: start: 20040101

REACTIONS (3)
  - ABDOMINAL PAIN [None]
  - DIABETES MELLITUS [None]
  - RESPIRATORY DISTRESS [None]
